FAERS Safety Report 18766749 (Version 1)
Quarter: 2021Q1

REPORT INFORMATION
  Report Type: Spontaneous
  Country: US (occurrence: US)
  Receive Date: 20210120
  Receipt Date: 20210120
  Transmission Date: 20210419
  Serious: No
  Sender: FDA-Public Use
  Company Number: None

PATIENT
  Age: 18 Year
  Sex: Female
  Weight: 66.6 kg

DRUGS (1)
  1. BAMLANIVIMAB. [Suspect]
     Active Substance: BAMLANIVIMAB
     Indication: COVID-19
     Route: 041
     Dates: start: 20210120, end: 20210120

REACTIONS (7)
  - Muscle tightness [None]
  - Paraesthesia [None]
  - Stress [None]
  - Psychogenic seizure [None]
  - Heart rate increased [None]
  - Disorientation [None]
  - Muscle spasms [None]

NARRATIVE: CASE EVENT DATE: 20210120
